FAERS Safety Report 11704241 (Version 1)
Quarter: 2015Q4

REPORT INFORMATION
  Report Type: Spontaneous
  Country: NL (occurrence: NL)
  Receive Date: 20151106
  Receipt Date: 20151106
  Transmission Date: 20160304
  Serious: Yes (Hospitalization)
  Sender: FDA-Public Use
  Company Number: NL-WATSON-2015-23039

PATIENT
  Age: 72 Year
  Sex: Male
  Weight: 88 kg

DRUGS (6)
  1. ACENOCOUMAROL [Concomitant]
     Active Substance: ACENOCOUMAROL
     Indication: PRODUCT USED FOR UNKNOWN INDICATION
     Dosage: UNK (EXTRA INFO: VOLGENS TROMBOSEDIENST - ADDITIONAL INFORMATION: ACCORDING THROMBOSIS)
     Route: 048
     Dates: start: 20030429
  2. AMOXICILLIN AND CLAVULANATE POTASSIUM [Suspect]
     Active Substance: AMOXICILLIN\CLAVULANATE POTASSIUM
     Indication: GOUT
     Dosage: 1 DF, TID (3 KEER PER DAG 1 STUK(S) - 3 TIMES DAILY 1 PIECE (S))
     Route: 048
     Dates: start: 20151019
  3. FLECAINIDE ACETATE. [Concomitant]
     Active Substance: FLECAINIDE ACETATE
     Indication: PRODUCT USED FOR UNKNOWN INDICATION
     Dosage: 100 MG, BID (2 KEER PER DAG 1 STUK(S) - 2 TIMES DAILY 1 PIECE (S))
     Route: 048
     Dates: start: 20040501
  4. METOPROLOL                         /00376903/ [Concomitant]
     Indication: PRODUCT USED FOR UNKNOWN INDICATION
     Dosage: 1 DF, DAILY (1 KEER PER DAG 1 STUK(S) - 1 TIME PER DAY 1 PIECE (S))
     Route: 048
     Dates: start: 20040501
  5. PREDNISOLONE. [Suspect]
     Active Substance: PREDNISOLONE
     Indication: GOUT
     Dosage: 30 MG, DAILY (1 KEER PER DAG 1 STUK(S) - 1 TIME PER DAY 1 PIECE (S))
     Route: 048
     Dates: start: 20151019
  6. PANTOPRAZOL TEVA [Concomitant]
     Active Substance: PANTOPRAZOLE SODIUM
     Indication: PRODUCT USED FOR UNKNOWN INDICATION
     Dosage: 40 MG, DAILY (1 KEER PER DAG 1 STUK(S) - 1 TIME PER DAY 1 PIECE (S))
     Route: 048
     Dates: start: 20120801

REACTIONS (1)
  - Arrhythmia [Not Recovered/Not Resolved]

NARRATIVE: CASE EVENT DATE: 20151019
